FAERS Safety Report 8533381-8 (Version None)
Quarter: 2012Q3

REPORT INFORMATION
  Report Type: 
  Country: None (occurrence: None)
  Receive Date: 20120724
  Receipt Date: 20120718
  Transmission Date: 20120928
  Serious: Yes (Hospitalization)
  Sender: FDA-Public Use
  Company Number: PHHO2011FR11435

PATIENT
  Sex: Male
  Weight: 73 kg

DRUGS (8)
  1. ATORVASTATIN [Concomitant]
     Dosage: 10 MG, UNK
     Route: 048
     Dates: start: 20110118
  2. AMLODIPINE BESYLATE [Concomitant]
     Dosage: 5 MG, UNK
     Route: 048
     Dates: start: 20110114
  3. PREDNISONE TAB [Concomitant]
     Indication: RENAL TRANSPLANT
     Dosage: 7.5
     Route: 048
     Dates: start: 20101219
  4. NEORAL [Suspect]
     Dosage: 326 MG (176 MG IN MORNING AND 150 MG IN EVENING)
     Route: 048
     Dates: start: 20110105
  5. NEORAL [Suspect]
     Indication: RENAL TRANSPLANT
     Dosage: 200 MG DAILY
     Route: 048
     Dates: start: 20101220
  6. SIMULECT [Concomitant]
     Indication: RENAL TRANSPLANT
     Route: 042
  7. CELLCEPT [Concomitant]
     Indication: RENAL TRANSPLANT
     Dosage: 1.5 MG, BID
     Route: 048
     Dates: start: 20101218
  8. CALCIUM CARBONATE [Concomitant]
     Dosage: 500 TWICE
     Route: 048
     Dates: start: 20101221

REACTIONS (5)
  - COMPLICATIONS OF TRANSPLANTED KIDNEY [None]
  - SEPSIS [None]
  - METABOLIC ACIDOSIS [None]
  - BLOOD CREATININE INCREASED [None]
  - PYELONEPHRITIS ACUTE [None]
